FAERS Safety Report 4492920-7 (Version None)
Quarter: 2004Q4

REPORT INFORMATION
  Report Type: 
  Country: None (occurrence: None)
  Receive Date: 20041104
  Receipt Date: 20041028
  Transmission Date: 20050328
  Serious: Yes (Disabling)
  Sender: FDA-Public Use
  Company Number: DE-MERCK-0411DEU00015

PATIENT
  Sex: Female

DRUGS (2)
  1. VIOXX [Suspect]
     Indication: LOCALISED OSTEOARTHRITIS
     Route: 048
     Dates: start: 20011201, end: 20030101
  2. VIOXX [Suspect]
     Route: 048
     Dates: start: 20031001, end: 20041001

REACTIONS (3)
  - BORRELIA INFECTION [None]
  - DEAFNESS UNILATERAL [None]
  - VERTIGO [None]
